FAERS Safety Report 14745685 (Version 1)
Quarter: 2018Q2

REPORT INFORMATION
  Report Type: Spontaneous
  Country: US (occurrence: US)
  Receive Date: 20180405
  Receipt Date: 20180405
  Transmission Date: 20180711
  Serious: No
  Sender: FDA-Public Use
  Company Number: None

PATIENT
  Age: 60 Year
  Sex: Female
  Weight: 86.18 kg

DRUGS (1)
  1. OXCARBAZEPINE TABS-300MG [Suspect]
     Active Substance: OXCARBAZEPINE
     Dosage: STARTING AROUND 3/28 TO CURRENT

REACTIONS (2)
  - Product physical issue [None]
  - Diarrhoea [None]

NARRATIVE: CASE EVENT DATE: 20180328
